FAERS Safety Report 8282599-0 (Version None)
Quarter: 2012Q2

REPORT INFORMATION
  Report Type: 
  Country: None (occurrence: None)
  Receive Date: 20120410
  Receipt Date: 20120402
  Transmission Date: 20120825
  Serious: Yes (Other)
  Sender: FDA-Public Use
  Company Number: 2011HGS-002707

PATIENT
  Age: 29 Year
  Sex: Female
  Weight: 81.6475 kg

DRUGS (6)
  1. CYMBALTA [Concomitant]
  2. PLAQUENIL [Concomitant]
  3. LYRICA [Concomitant]
  4. BENLYSTA [Suspect]
     Indication: SYSTEMIC LUPUS ERYTHEMATOSUS
     Dosage: 1 IN 1 M, INTRAVENOUS DRIP
     Route: 041
     Dates: start: 20110816
  5. PREDNISONE TAB [Concomitant]
  6. CELLCEPT [Concomitant]

REACTIONS (1)
  - SUICIDAL IDEATION [None]
